FAERS Safety Report 21305376 (Version 3)
Quarter: 2023Q2

REPORT INFORMATION
  Report Type: Report from Study
  Country: JP (occurrence: JP)
  Receive Date: 20220908
  Receipt Date: 20230614
  Transmission Date: 20230721
  Serious: Yes (Hospitalization, Other)
  Sender: FDA-Public Use
  Company Number: JP-KYOWAKIRIN-2022AKK013792

PATIENT
  Age: 60 Year
  Sex: Male

DRUGS (10)
  1. ROMIPLOSTIM [Suspect]
     Active Substance: ROMIPLOSTIM
     Indication: Aplastic anaemia
     Dosage: 20 MICROGRAM/KILOGRAM
     Route: 058
     Dates: start: 20200229, end: 20200229
  2. ROMIPLOSTIM [Suspect]
     Active Substance: ROMIPLOSTIM
     Dosage: 10 MICROGRAM/KILOGRAM
     Route: 058
     Dates: start: 20200215, end: 20200215
  3. ROMIPLOSTIM [Suspect]
     Active Substance: ROMIPLOSTIM
     Dosage: 15 MICROGRAM/KILOGRAM
     Route: 058
     Dates: start: 20200222
  4. NEORAL [Concomitant]
     Active Substance: CYCLOSPORINE
     Indication: Aplastic anaemia
     Dosage: UNK
     Route: 048
  5. ACYCLOVIR [Concomitant]
     Active Substance: ACYCLOVIR
     Indication: Product used for unknown indication
     Dosage: UNK
     Route: 048
  6. DIFLUCAN [Concomitant]
     Active Substance: FLUCONAZOLE
     Indication: Product used for unknown indication
     Dosage: UNK
     Route: 048
  7. AMLODIPINE BESYLATE [Concomitant]
     Active Substance: AMLODIPINE BESYLATE
     Indication: Hypertension
     Dosage: UNK
     Route: 048
  8. ADONAMIN C [Concomitant]
     Indication: Mucosal haemorrhage
     Dosage: UNK
     Route: 048
  9. PREDONINE [Concomitant]
     Active Substance: PREDNISOLONE
     Indication: Aplastic anaemia
     Dosage: UNK
     Route: 048
  10. METHENOLONE [Concomitant]
     Active Substance: METHENOLONE
     Indication: Aplastic anaemia
     Dosage: UNK
     Route: 048

REACTIONS (1)
  - Aplastic anaemia [Unknown]

NARRATIVE: CASE EVENT DATE: 20200229
